FAERS Safety Report 12737010 (Version 1)
Quarter: 2016Q3

REPORT INFORMATION
  Report Type: Spontaneous
  Country: US (occurrence: US)
  Receive Date: 20160913
  Receipt Date: 20160913
  Transmission Date: 20161109
  Serious: No
  Sender: FDA-Public Use
  Company Number: US-BEH-2016073373

PATIENT
  Age: 57 Year
  Sex: Male
  Weight: 104.31 kg

DRUGS (20)
  1. CYMBALTA [Concomitant]
     Active Substance: DULOXETINE HYDROCHLORIDE
  2. MULTIVITAMINS, PLAIN [Concomitant]
     Active Substance: VITAMINS
  3. CEFUROXIME. [Concomitant]
     Active Substance: CEFUROXIME
  4. LOSARTAN. [Concomitant]
     Active Substance: LOSARTAN
  5. HIZENTRA [Suspect]
     Active Substance: HUMAN IMMUNOGLOBULIN G
     Indication: IMMUNODEFICIENCY COMMON VARIABLE
     Dosage: 16 G, EVERY WEEK
     Route: 058
     Dates: start: 20160711
  6. LYRICA [Concomitant]
     Active Substance: PREGABALIN
  7. EPINEPHRINE. [Concomitant]
     Active Substance: EPINEPHRINE
  8. KRILL OIL [Concomitant]
     Active Substance: DIETARY SUPPLEMENT
  9. FISH OIL [Concomitant]
     Active Substance: FISH OIL
  10. ACETAMINOPHEN. [Concomitant]
     Active Substance: ACETAMINOPHEN
  11. VITAMIN D3 [Concomitant]
     Active Substance: CHOLECALCIFEROL
  12. LIOTHYRONINE [Concomitant]
     Active Substance: LIOTHYRONINE
  13. LEVOTHYROXINE                      /00068002/ [Concomitant]
     Active Substance: LEVOTHYROXINE
  14. BIOTIN [Concomitant]
     Active Substance: BIOTIN
  15. METHOCARBAMOL. [Concomitant]
     Active Substance: METHOCARBAMOL
  16. ZYRTEC [Concomitant]
     Active Substance: CETIRIZINE HYDROCHLORIDE
  17. ASPIRIN. [Concomitant]
     Active Substance: ASPIRIN
  18. TRAMADOL                           /00599202/ [Concomitant]
     Active Substance: TRAMADOL
  19. PROBIOTIC                          /06395501/ [Concomitant]
     Active Substance: BIFIDOBACTERIUM ANIMALIS SUBSP. LACTIS
  20. DIPHENHYDRAMINE. [Concomitant]
     Active Substance: DIPHENHYDRAMINE

REACTIONS (1)
  - Rash [Unknown]

NARRATIVE: CASE EVENT DATE: 201608
